FAERS Safety Report 12598629 (Version 1)
Quarter: 2016Q3

REPORT INFORMATION
  Report Type: Spontaneous
  Country: IT (occurrence: IT)
  Receive Date: 20160726
  Receipt Date: 20160726
  Transmission Date: 20161109
  Serious: Yes (Other)
  Sender: FDA-Public Use
  Company Number: IT-ASTRAZENECA-2016SE78447

PATIENT
  Age: 46 Year
  Sex: Male
  Weight: 92 kg

DRUGS (7)
  1. FORXIGA [Suspect]
     Active Substance: DAPAGLIFLOZIN
     Indication: DIABETES MELLITUS
     Route: 048
  2. APROVEL [Suspect]
     Active Substance: IRBESARTAN
     Route: 048
  3. NOVORAPID [Suspect]
     Active Substance: INSULIN ASPART
     Route: 065
  4. LEVEMIR [Suspect]
     Active Substance: INSULIN DETEMIR
     Indication: DIABETES MELLITUS
     Route: 065
  5. CARDIRENE [Suspect]
     Active Substance: ASPIRIN DL-LYSINE
     Dosage: 160.0MG UNKNOWN
     Route: 065
  6. CONGESCOR [Suspect]
     Active Substance: BISOPROLOL
     Route: 048
  7. EZETROL [Suspect]
     Active Substance: EZETIMIBE
     Route: 065

REACTIONS (3)
  - Fatigue [Unknown]
  - Diabetes mellitus inadequate control [Unknown]
  - Neuropathy peripheral [Unknown]
